FAERS Safety Report 11212129 (Version 1)
Quarter: 2015Q2

REPORT INFORMATION
  Report Type: Spontaneous
  Country: US (occurrence: US)
  Receive Date: 20150623
  Receipt Date: 20150623
  Transmission Date: 20150821
  Serious: No
  Sender: FDA-Public Use
  Company Number: US-ASTRAZENECA-2015SE61077

PATIENT
  Sex: Female
  Weight: 73 kg

DRUGS (3)
  1. NEXIUM 24HR [Suspect]
     Active Substance: ESOMEPRAZOLE MAGNESIUM
     Indication: DYSPEPSIA
     Route: 048
     Dates: start: 201502
  2. PRILOSEC [Suspect]
     Active Substance: OMEPRAZOLE MAGNESIUM
     Dosage: ONE A DAY
     Route: 048
  3. NEXIUM 24HR [Suspect]
     Active Substance: ESOMEPRAZOLE MAGNESIUM
     Indication: GASTROOESOPHAGEAL REFLUX DISEASE
     Route: 048
     Dates: start: 201502

REACTIONS (6)
  - Drug dose omission [Unknown]
  - Gastrooesophageal reflux disease [Unknown]
  - Dyspepsia [Unknown]
  - Hypophagia [Unknown]
  - Product physical issue [Unknown]
  - Drug ineffective [Unknown]
